FAERS Safety Report 6168111-0 (Version None)
Quarter: 2009Q2

REPORT INFORMATION
  Report Type: 
  Country: None (occurrence: None)
  Receive Date: 20090423
  Receipt Date: 20090412
  Transmission Date: 20091009
  Serious: Yes (Hospitalization, Other)
  Sender: FDA-Public Use
  Company Number: 233988K09USA

PATIENT
  Age: 36 Year
  Sex: Female
  Weight: 126 kg

DRUGS (4)
  1. REBIF [Suspect]
     Indication: MULTIPLE SCLEROSIS
     Dosage: 44 MCG, 3 IN 1 WEEKS, SUBCUTANEOUS
     Route: 058
     Dates: start: 20080627
  2. NEURONTIN [Concomitant]
  3. BACLOFEN [Concomitant]
  4. IBUPROFEN [Concomitant]

REACTIONS (5)
  - CONDITION AGGRAVATED [None]
  - MULTIPLE SCLEROSIS [None]
  - NASOPHARYNGITIS [None]
  - URINARY INCONTINENCE [None]
  - UTERINE LEIOMYOMA [None]
